FAERS Safety Report 8538866-6 (Version None)
Quarter: 2012Q3

REPORT INFORMATION
  Report Type: 
  Country: None (occurrence: None)
  Receive Date: 20120726
  Receipt Date: 20120718
  Transmission Date: 20120928
  Serious: Yes (Other)
  Sender: FDA-Public Use
  Company Number: CA-UCBSA-062172

PATIENT
  Age: 48 Year
  Sex: Female
  Weight: 58.05 kg

DRUGS (4)
  1. CYMBALTA [Concomitant]
     Indication: FIBROMYALGIA
     Route: 048
     Dates: start: 20090801
  2. CIMZIA [Suspect]
     Indication: RHEUMATOID ARTHRITIS
     Route: 058
     Dates: start: 20100819
  3. CIMZIA [Suspect]
     Route: 058
     Dates: start: 20100812, end: 20100812
  4. AMITRIPTYLINE HYDROCHLORIDE [Concomitant]
     Indication: FIBROMYALGIA
     Dosage: AT BEDTIME.
     Route: 048

REACTIONS (1)
  - FUNGAL INFECTION [None]
